FAERS Safety Report 8373358-9 (Version None)
Quarter: 2012Q2

REPORT INFORMATION
  Report Type: 
  Country: None (occurrence: None)
  Receive Date: 20120521
  Receipt Date: 20120507
  Transmission Date: 20120825
  Serious: No
  Sender: FDA-Public Use
  Company Number: US-ASTRAZENECA-2011SE69449

PATIENT
  Age: 66 Year
  Sex: Female

DRUGS (4)
  1. NEBULIZER [Concomitant]
  2. SEROQUEL [Suspect]
     Indication: SLEEP DISORDER
     Route: 048
  3. SEROQUEL [Suspect]
     Indication: BIPOLAR DISORDER
     Route: 048
  4. OXYGEN [Concomitant]

REACTIONS (2)
  - FEELING JITTERY [None]
  - BRONCHITIS [None]
